FAERS Safety Report 15251251 (Version 3)
Quarter: 2018Q3

REPORT INFORMATION
  Report Type: Spontaneous
  Country: US (occurrence: US)
  Receive Date: 20180807
  Receipt Date: 20180907
  Transmission Date: 20181010
  Serious: No
  Sender: FDA-Public Use
  Company Number: US-009507513-1808USA001792

PATIENT
  Age: 26 Year
  Sex: Female
  Weight: 90.25 kg

DRUGS (2)
  1. NEXPLANON [Suspect]
     Active Substance: ETONOGESTREL
     Indication: CONTRACEPTION
     Dosage: 68 (1 IMPLANT), UNK
     Route: 059
     Dates: start: 20150825, end: 20180802
  2. NEXPLANON [Suspect]
     Active Substance: ETONOGESTREL
     Dosage: 68 (1 IMPLANT), UNK
     Route: 059
     Dates: start: 20180802

REACTIONS (3)
  - Complication of device removal [Recovered/Resolved]
  - Implant site scar [Unknown]
  - Device breakage [Recovered/Resolved]

NARRATIVE: CASE EVENT DATE: 20180802
